FAERS Safety Report 8991874 (Version 1)
Quarter: 2012Q4

REPORT INFORMATION
  Report Type: 
  Country: ZA (occurrence: ZA)
  Receive Date: 20121231
  Receipt Date: 20121231
  Transmission Date: 20130627
  Serious: Yes (Other)
  Sender: FDA-Public Use
  Company Number: PHHY2012ZA121297

PATIENT
  Sex: Female

DRUGS (1)
  1. ACLASTA [Suspect]
     Indication: OSTEOPOROSIS
     Dosage: 5 mg, UNK
     Dates: start: 201201

REACTIONS (5)
  - Neurological symptom [Not Recovered/Not Resolved]
  - Lethargy [Not Recovered/Not Resolved]
  - Paralysis [Not Recovered/Not Resolved]
  - Abasia [Not Recovered/Not Resolved]
  - Dysstasia [Not Recovered/Not Resolved]
